FAERS Safety Report 5702474-2 (Version None)
Quarter: 2008Q2

REPORT INFORMATION
  Report Type: 
  Country: None (occurrence: None)
  Receive Date: 20080411
  Receipt Date: 20080402
  Transmission Date: 20081010
  Serious: Yes (Death)
  Sender: FDA-Public Use
  Company Number: US-JNJFOC-20080401028

PATIENT
  Sex: Male

DRUGS (7)
  1. FENTANYL [Suspect]
     Indication: DRUG ABUSE
     Route: 065
  2. IBUPROFEN [Suspect]
     Route: 065
  3. IBUPROFEN [Suspect]
     Indication: DRUG USE FOR UNKNOWN INDICATION
     Route: 065
  4. COCAINE [Suspect]
     Indication: DRUG ABUSE
     Route: 065
  5. XYLAZINE [Suspect]
     Indication: DRUG ABUSE
     Route: 065
  6. NAPROXEN [Suspect]
     Indication: DRUG USE FOR UNKNOWN INDICATION
     Route: 065
  7. HEROIN [Suspect]
     Indication: DRUG ABUSE
     Route: 065

REACTIONS (2)
  - DRUG ABUSE [None]
  - DRUG TOXICITY [None]
